FAERS Safety Report 23967546 (Version 1)
Quarter: 2024Q2

REPORT INFORMATION
  Report Type: Spontaneous
  Country: AU (occurrence: None)
  Receive Date: 20240612
  Receipt Date: 20240612
  Transmission Date: 20240716
  Serious: Yes (Other)
  Sender: FDA-Public Use
  Company Number: 2024A135526

PATIENT
  Age: 79 Year
  Sex: Male

DRUGS (10)
  1. OMEPRAZOLE [Suspect]
     Active Substance: DONEPEZIL HYDROCHLORIDE\OMEPRAZOLE\OMEPRAZOLE MAGNESIUM
     Indication: Product used for unknown indication
  2. ATORVASTATIN [Suspect]
     Active Substance: ATORVASTATIN
     Indication: Product used for unknown indication
  3. FLUAD QUADRIVALENT NOS [Suspect]
     Active Substance: INFLUENZA A VIRUS A/HONG KONG/2671/2019 IVR-208 (H3N2) ANTIGEN (FORMALDEHYDE INACTIVATED)\INFLUENZA
  4. AMLODIPINE [Suspect]
     Active Substance: AMLODIPINE BESYLATE
  5. APIXABAN [Suspect]
     Active Substance: APIXABAN
  6. DUTASTERIDE\TAMSULOSIN HYDROCHLORIDE [Suspect]
     Active Substance: DUTASTERIDE\TAMSULOSIN HYDROCHLORIDE
  7. ESCITALOPRAM OXALATE [Suspect]
     Active Substance: ESCITALOPRAM OXALATE
  8. NITROGLYCERIN [Suspect]
     Active Substance: NITROGLYCERIN
  9. IRBESARTAN [Suspect]
     Active Substance: IRBESARTAN
  10. SOTALOL HYDROCHLORIDE [Suspect]
     Active Substance: SOTALOL HYDROCHLORIDE

REACTIONS (5)
  - Atrial fibrillation [Unknown]
  - Chest pain [Unknown]
  - Palpitations [Unknown]
  - Dizziness [Unknown]
  - Hypomagnesaemia [Unknown]
